FAERS Safety Report 5302088-2 (Version None)
Quarter: 2007Q2

REPORT INFORMATION
  Report Type: 
  Country: None (occurrence: None)
  Receive Date: 20070419
  Receipt Date: 20070412
  Transmission Date: 20071010
  Serious: Yes (Death)
  Sender: FDA-Public Use
  Company Number: GR-GLAXOSMITHKLINE-B0460423A

PATIENT
  Age: 60 Year
  Sex: Female

DRUGS (9)
  1. ZINACEF [Suspect]
     Dosage: 750MG PER DAY
     Route: 042
     Dates: start: 20070220
  2. CIPROFLOXACIN HYDROCHLORIDE [Concomitant]
     Indication: GASTRITIS
     Dosage: 500MG TWICE PER DAY
     Route: 048
     Dates: start: 20070201
  3. AMOXIL [Concomitant]
     Dates: start: 20070219
  4. ACTOS [Concomitant]
  5. GLUCOPHAGE METFORMINE [Concomitant]
     Route: 065
  6. SIMVASTATIN [Concomitant]
     Route: 065
  7. OMEPRAZOLE [Concomitant]
  8. IMODIUM [Concomitant]
  9. BUFLOMEDIL HYDROCHLORIDE [Concomitant]

REACTIONS (5)
  - ANAPHYLACTIC SHOCK [None]
  - CONTUSION [None]
  - INCORRECT ROUTE OF DRUG ADMINISTRATION [None]
  - OEDEMA [None]
  - SKIN DISCOLOURATION [None]
